FAERS Safety Report 8225857-8 (Version None)
Quarter: 2012Q1

REPORT INFORMATION
  Report Type: 
  Country: None (occurrence: None)
  Receive Date: 20120321
  Receipt Date: 20120309
  Transmission Date: 20120608
  Serious: Yes (Hospitalization)
  Sender: FDA-Public Use
  Company Number: CH-PFIZER INC-2012071250

PATIENT
  Age: 8 Year
  Sex: Male

DRUGS (1)
  1. EPIPEN JR. [Suspect]
     Indication: ANAPHYLACTIC SHOCK
     Dosage: 15 MG, 1X/DAY TOTAL
     Route: 058
     Dates: start: 20120121, end: 20120121

REACTIONS (3)
  - CYANOSIS [None]
  - INJECTION SITE PAIN [None]
  - DRUG ADMINISTRATION ERROR [None]
